FAERS Safety Report 8561734 (Version 3)
Quarter: 2013Q2

REPORT INFORMATION
  Report Type: Spontaneous
  Country: AU (occurrence: AU)
  Receive Date: 20120515
  Receipt Date: 20130502
  Transmission Date: 20140414
  Serious: Yes (Other)
  Sender: FDA-Public Use
  Company Number: AU-UCBSA-056923

PATIENT
  Sex: Male

DRUGS (1)
  1. VIMPAT [Suspect]
     Route: 048
     Dates: start: 20120315, end: 2012

REACTIONS (6)
  - Bone marrow failure [Unknown]
  - Thrombocytopenia [Recovered/Resolved with Sequelae]
  - Neutropenia [Recovered/Resolved with Sequelae]
  - Headache [Recovered/Resolved with Sequelae]
  - Oropharyngeal pain [Recovered/Resolved with Sequelae]
  - Infection [Unknown]
